FAERS Safety Report 6635892-9 (Version None)
Quarter: 2010Q1

REPORT INFORMATION
  Report Type: 
  Country: None (occurrence: None)
  Receive Date: 20100316
  Receipt Date: 20100309
  Transmission Date: 20100710
  Serious: Yes (Other)
  Sender: FDA-Public Use
  Company Number: PHEH2009US14266

PATIENT
  Sex: Female

DRUGS (1)
  1. EXJADE [Suspect]
     Dosage: 1125 MG DAILY
     Route: 048
     Dates: start: 20090611, end: 20090930

REACTIONS (2)
  - HEADACHE [None]
  - KNEE OPERATION [None]
